FAERS Safety Report 6433459-9 (Version None)
Quarter: 2009Q4

REPORT INFORMATION
  Report Type: 
  Country: None (occurrence: None)
  Receive Date: 20091106
  Receipt Date: 20091106
  Transmission Date: 20100525
  Serious: Yes (Other)
  Sender: FDA-Public Use
  Company Number: None

PATIENT
  Sex: Male
  Weight: 15.8759 kg

DRUGS (1)
  1. VIGAMOX [Suspect]
     Indication: CONJUNCTIVITIS
     Dosage: 1 DROP 3X OPHTHALMIC
     Route: 047
     Dates: start: 20091022, end: 20091022

REACTIONS (2)
  - LACRIMATION INCREASED [None]
  - SWELLING [None]
